FAERS Safety Report 5839512-2 (Version None)
Quarter: 2008Q3

REPORT INFORMATION
  Report Type: 
  Country: None (occurrence: None)
  Receive Date: 20080807
  Receipt Date: 20080801
  Transmission Date: 20090109
  Serious: Yes (Death)
  Sender: FDA-Public Use
  Company Number: 114-21880-08080073

PATIENT
  Age: 64 Year
  Sex: Male

DRUGS (8)
  1. REVLIMID [Suspect]
     Indication: MULTIPLE MYELOMA
     Dosage: 25 MG, 1 IN 1 D, ORAL
     Route: 048
     Dates: start: 20080724, end: 20080731
  2. DEXAMETHASONE TAB [Concomitant]
  3. ACETAMINOPHEN [Concomitant]
  4. OXYCONTIN (OXYCODONE HYDROCHLORIDE) (TABLETS) [Concomitant]
  5. OXYNORM (OXYCODONE HYDROCHLORIDE) (CAPSULES) [Concomitant]
  6. NEXIUM [Concomitant]
  7. CALCICHEW (CALCIUM CARBONATE) (CAPSULES) [Concomitant]
  8. FOSAMAX (ALENDRONATE SODIUM) (CAPSULES) [Concomitant]

REACTIONS (1)
  - DEATH [None]
